FAERS Safety Report 5652702-7 (Version None)
Quarter: 2008Q1

REPORT INFORMATION
  Report Type: 
  Country: None (occurrence: None)
  Receive Date: 20080305
  Receipt Date: 20080305
  Transmission Date: 20080703
  Serious: Yes (Life-Threatening, Hospitalization)
  Sender: FDA-Public Use
  Company Number: None

PATIENT
  Age: 73 Year
  Sex: Male

DRUGS (1)
  1. SULFAMETHOXAZOLE AND TRIMETHOPRIM [Suspect]
     Indication: INFECTION
     Dosage: TTAB  BID PO
     Route: 048
     Dates: start: 20071126, end: 20071127

REACTIONS (3)
  - HYPERKALAEMIA [None]
  - MALAISE [None]
  - ORAL INTAKE REDUCED [None]
